FAERS Safety Report 23015759 (Version 9)
Quarter: 2024Q2

REPORT INFORMATION
  Report Type: Spontaneous
  Country: US (occurrence: US)
  Receive Date: 20231002
  Receipt Date: 20240426
  Transmission Date: 20240717
  Serious: No
  Sender: FDA-Public Use
  Company Number: US-PFIZER INC-PV202300153757

PATIENT
  Age: 16 Year
  Sex: Male
  Weight: 48.98 kg

DRUGS (1)
  1. GENOTROPIN [Suspect]
     Active Substance: SOMATROPIN
     Dosage: 1.8 MG (6 DAYS/WEEK)

REACTIONS (4)
  - Device difficult to use [Unknown]
  - Device use error [Unknown]
  - Device delivery system issue [Unknown]
  - Device breakage [Unknown]
